FAERS Safety Report 6345511-7 (Version None)
Quarter: 2009Q3

REPORT INFORMATION
  Report Type: 
  Country: None (occurrence: None)
  Receive Date: 20090909
  Receipt Date: 20090828
  Transmission Date: 20100115
  Serious: Yes (Life-Threatening, Hospitalization, Disabling)
  Sender: FDA-Public Use
  Company Number: KR-BRISTOL-MYERS SQUIBB COMPANY-14731210

PATIENT
  Age: 66 Year
  Sex: Male
  Weight: 65 kg

DRUGS (3)
  1. CETUXIMAB [Suspect]
     Indication: GASTROOESOPHAGEAL CANCER
     Dosage: CETUXIMAB 5MG/ML RECENT INF: 30JUL09 TEMPORARILY DISCONTINUED ON 06AUG09;
     Route: 042
     Dates: start: 20090508
  2. CISPLATIN [Suspect]
     Indication: GASTROOESOPHAGEAL CANCER
     Dosage: ON DAY 1 OF CYCLE RECENT INF: 23JUL09; TEMPORARILY DISCONTINUED ON 06AUG09;
     Route: 042
     Dates: start: 20090508
  3. XELODA [Suspect]
     Indication: GASTROOESOPHAGEAL CANCER
     Dosage: ON DAY 1-15 RECENT INF: 23JUL09; TEMPORARILY DISCONTINUED ON 03AUG09;
     Route: 048
     Dates: start: 20090508

REACTIONS (1)
  - PULMONARY EMBOLISM [None]
